FAERS Safety Report 9154103 (Version 1)
Quarter: 2013Q1

REPORT INFORMATION
  Report Type: Spontaneous
  Country: US (occurrence: None)
  Receive Date: 20130306
  Receipt Date: 20130306
  Transmission Date: 20140127
  Serious: Yes (Hospitalization, Other)
  Sender: FDA-Public Use
  Company Number: None

PATIENT
  Age: 75 Year
  Sex: Male
  Weight: 83.92 kg

DRUGS (1)
  1. EFFIENT [Suspect]
     Route: 048
     Dates: start: 20121012, end: 20130210

REACTIONS (5)
  - Dizziness [None]
  - Dizziness [None]
  - Vomiting [None]
  - Feeling abnormal [None]
  - Constipation [None]
